FAERS Safety Report 21127734 (Version 1)
Quarter: 2022Q3

REPORT INFORMATION
  Report Type: Spontaneous
  Country: US (occurrence: US)
  Receive Date: 20220725
  Receipt Date: 20220725
  Transmission Date: 20221026
  Serious: No
  Sender: FDA-Public Use
  Company Number: US-ABBVIE-22K-163-4247369-00

PATIENT
  Sex: Male
  Weight: 83.990 kg

DRUGS (1)
  1. SYNTHROID [Suspect]
     Active Substance: LEVOTHYROXINE SODIUM
     Indication: Hypothyroidism
     Route: 048
     Dates: start: 1978, end: 202111

REACTIONS (4)
  - Abdominal pain lower [Recovering/Resolving]
  - Abdominal distension [Recovering/Resolving]
  - Coeliac disease [Not Recovered/Not Resolved]
  - Lactose intolerance [Not Recovered/Not Resolved]

NARRATIVE: CASE EVENT DATE: 19900101
